FAERS Safety Report 18273403 (Version 1)
Quarter: 2020Q3

REPORT INFORMATION
  Report Type: Spontaneous
  Country: US (occurrence: US)
  Receive Date: 20200916
  Receipt Date: 20200916
  Transmission Date: 20201103
  Serious: Yes (Hospitalization)
  Sender: FDA-Public Use
  Company Number: None

PATIENT
  Sex: Male

DRUGS (4)
  1. WARFARIN, LAMICTAL, LEXAPRO, LISINOPRIL, POTASSIUM CHLORIDE, KLONOPIN [Concomitant]
  2. VYNDAMAX [Suspect]
     Active Substance: TAFAMIDIS
     Indication: PRODUCT USED FOR UNKNOWN INDICATION
     Route: 048
     Dates: start: 20200117
  3. WELLBUTRIN, METOPROLOL TARTRATE, LAMOTRIGINE, PROPAFENONE, SYNTHROID [Concomitant]
  4. RAMELTEON, TORSEMIDE [Concomitant]

REACTIONS (1)
  - Surgery [None]
